FAERS Safety Report 23950180 (Version 1)
Quarter: 2024Q2

REPORT INFORMATION
  Report Type: Report from Study
  Country: US (occurrence: US)
  Receive Date: 20240607
  Receipt Date: 20240607
  Transmission Date: 20240716
  Serious: Yes (Other)
  Sender: FDA-Public Use
  Company Number: US-UCBSA-2024019648

PATIENT
  Sex: Male
  Weight: 150 kg

DRUGS (1)
  1. BRIVARACETAM [Suspect]
     Active Substance: BRIVARACETAM
     Indication: Seizure
     Dosage: 150 MILLIGRAM, 2X/DAY (BID)(50 MG ALONG WITH 100 MG TO EQUAL 150 MG TWICE DAILY)

REACTIONS (3)
  - Seizure [Unknown]
  - Off label use [Unknown]
  - Prescribed overdose [Unknown]
